FAERS Safety Report 19977453 (Version 2)
Quarter: 2021Q4

REPORT INFORMATION
  Report Type: Spontaneous
  Country: JP (occurrence: JP)
  Receive Date: 20211021
  Receipt Date: 20211109
  Transmission Date: 20220303
  Serious: Yes (Hospitalization)
  Sender: FDA-Public Use
  Company Number: JP-JNJFOC-A-CH2019-189608

PATIENT
  Age: 11 Year
  Sex: Male

DRUGS (7)
  1. OPSUMIT [Suspect]
     Active Substance: MACITENTAN
     Indication: Pulmonary arterial hypertension
     Dosage: 10 MG, QD
     Route: 048
     Dates: start: 20190404
  2. VELETRI [Suspect]
     Active Substance: EPOPROSTENOL
     Indication: Pulmonary arterial hypertension
     Route: 042
     Dates: start: 20190327, end: 20210805
  3. VELETRI [Suspect]
     Active Substance: EPOPROSTENOL
     Route: 041
     Dates: start: 20210806
  4. ADCIRCA [Suspect]
     Active Substance: TADALAFIL
     Indication: Pulmonary arterial hypertension
     Dosage: 20 MG, QD
     Route: 048
     Dates: start: 20190327, end: 20190329
  5. ADCIRCA [Suspect]
     Active Substance: TADALAFIL
     Dosage: 40 MG, QD
     Route: 048
     Dates: start: 20190330
  6. EPINASTINE HYDROCHLORIDE [Concomitant]
     Active Substance: EPINASTINE HYDROCHLORIDE
     Indication: Rhinitis allergic
     Route: 048
     Dates: start: 20190321, end: 20190517
  7. OXYGEN [Concomitant]
     Active Substance: OXYGEN

REACTIONS (13)
  - Device occlusion [Recovered/Resolved]
  - Vision blurred [Recovered/Resolved]
  - Pyrexia [Recovered/Resolved]
  - Headache [Recovered/Resolved]
  - Oedema [Unknown]
  - Ocular hyperaemia [Unknown]
  - Hiccups [Unknown]
  - Dysphagia [Unknown]
  - Off label use [Unknown]
  - Abnormal sensation in eye [Recovered/Resolved]
  - Seasonal allergy [Recovered/Resolved]
  - Product use issue [Unknown]
  - Product deposit [Unknown]

NARRATIVE: CASE EVENT DATE: 20190401
